FAERS Safety Report 9432303 (Version 3)
Quarter: 2014Q2

REPORT INFORMATION
  Report Type: Report from Study
  Country: BR (occurrence: BR)
  Receive Date: 20130731
  Receipt Date: 20140506
  Transmission Date: 20141212
  Serious: Yes (Other)
  Sender: FDA-Public Use
  Company Number: BR-ROCHE-1217233

PATIENT
  Sex: Female
  Weight: 55 kg

DRUGS (4)
  1. ACTEMRA [Suspect]
     Indication: RHEUMATOID ARTHRITIS
     Dosage: LAST INFUSION: MAY/2013.
     Route: 042
     Dates: start: 20120515
  2. OLMETEC [Concomitant]
     Indication: HYPERTENSION
  3. TECNOMET [Concomitant]
     Indication: PAIN
  4. GINKGO BILOBA EXTRACT [Concomitant]
     Indication: LABYRINTHITIS

REACTIONS (8)
  - Deafness [Recovering/Resolving]
  - Femur fracture [Unknown]
  - Fall [Unknown]
  - Hair texture abnormal [Recovering/Resolving]
  - Tinnitus [Not Recovered/Not Resolved]
  - Labyrinthitis [Recovering/Resolving]
  - Muscle spasms [Recovered/Resolved]
  - Carotid artery occlusion [Unknown]
